FAERS Safety Report 8160866-9 (Version None)
Quarter: 2012Q1

REPORT INFORMATION
  Report Type: 
  Country: None (occurrence: None)
  Receive Date: 20120223
  Receipt Date: 20120221
  Transmission Date: 20120608
  Serious: Yes (Life-Threatening, Hospitalization)
  Sender: FDA-Public Use
  Company Number: PHEH2012US001674

PATIENT
  Sex: Male

DRUGS (2)
  1. LEXAPRO [Concomitant]
  2. VALTURNA [Suspect]
     Dosage: 150 MG ALIS AND 160 MG VALS

REACTIONS (3)
  - RENAL FAILURE [None]
  - RENAL INJURY [None]
  - FEELING ABNORMAL [None]
